FAERS Safety Report 5018763-3 (Version None)
Quarter: 2006Q2

REPORT INFORMATION
  Report Type: 
  Country: None (occurrence: None)
  Receive Date: 20060606
  Receipt Date: 20060526
  Transmission Date: 20061013
  Serious: Yes (Hospitalization)
  Sender: FDA-Public Use
  Company Number: ES-SOLVAY-00306001775

PATIENT
  Age: 39 Year
  Sex: Male

DRUGS (9)
  1. METHYLPREDNISOLONE 16MG TAB [Concomitant]
     Indication: ILL-DEFINED DISORDER
     Dosage: DAILY DOSE: 1 MILLIGRAM(S)/KILOGRAM
     Route: 040
  2. METHYLPREDNISOLONE [Concomitant]
     Dosage: DAILY DOSE:  UNKNOWN
     Route: 040
  3. MESALAZINE [Suspect]
     Indication: COLITIS ULCERATIVE
     Dosage: DAILY DOSE: 4 GRAM(S)
     Route: 048
  4. MESALAZINE [Suspect]
     Dosage: DAILY DOSE:  UNKNOWN
     Route: 061
  5. MESALAZINE [Suspect]
     Dosage: 1 G/12 HOURS
     Route: 065
  6. LOW-MOLECULAR-WEIGHT HEPARIN [Concomitant]
     Indication: ILL-DEFINED DISORDER
     Dosage: DAILY DOSE:  UNKNOWN
     Route: 065
  7. CALCIUM GLUCONATE [Concomitant]
     Indication: ILL-DEFINED DISORDER
     Dosage: DAILY DOSE:  UNKNOWN
     Route: 065
  8. VITAMIN D [Concomitant]
     Indication: ILL-DEFINED DISORDER
     Dosage: DAILY DOSE:  UNKNOWN
     Route: 065
  9. ENTERAL NUTRITION [Concomitant]
     Indication: ILL-DEFINED DISORDER
     Dosage: DAILY DOSE:  UNKNOWN
     Route: 065

REACTIONS (2)
  - MITRAL VALVE INCOMPETENCE [None]
  - MYOPERICARDITIS [None]
